FAERS Safety Report 4781145-3 (Version None)
Quarter: 2005Q3

REPORT INFORMATION
  Report Type: 
  Country: None (occurrence: None)
  Receive Date: 20050928
  Receipt Date: 20050916
  Transmission Date: 20060218
  Serious: Yes (Death, Hospitalization)
  Sender: FDA-Public Use
  Company Number: US-BRISTOL-MYERS SQUIBB COMPANY-13113360

PATIENT
  Age: 75 Year
  Sex: Male
  Weight: 61 kg

DRUGS (6)
  1. COUMADIN [Suspect]
     Indication: PULMONARY EMBOLISM
     Dates: end: 20050901
  2. COUMADIN [Suspect]
     Indication: PULMONARY OEDEMA
     Dates: end: 20050901
  3. COUMADIN [Suspect]
     Dates: end: 20050901
  4. COUMADIN [Suspect]
     Dates: end: 20050901
  5. CASODEX [Concomitant]
     Dosage: DURATION: SEVERAL MONTHS
     Dates: end: 20050901
  6. LASIX [Concomitant]
     Dosage: DURATION: SEVERAL MONTHS
     Dates: end: 20050901

REACTIONS (1)
  - PNEUMONIA [None]
